FAERS Safety Report 4899107-4 (Version None)
Quarter: 2006Q1

REPORT INFORMATION
  Report Type: 
  Country: None (occurrence: None)
  Receive Date: 20060130
  Receipt Date: 20060118
  Transmission Date: 20060701
  Serious: Yes (Hospitalization, Other)
  Sender: FDA-Public Use
  Company Number: 2005166600

PATIENT
  Age: 65 Year
  Sex: Male

DRUGS (8)
  1. SULPERAZON (SULBACTAM, CEFOPERAZONE) [Suspect]
     Indication: CHOLECYSTITIS
     Dosage: 2 GRAM, INTRAVENOUS
     Route: 042
     Dates: start: 20051116, end: 20051128
  2. GLYCEROL (FRUCTOSE, GLYCEROL) [Concomitant]
  3. PHENYTOIN [Concomitant]
  4. FAMOTIDINE [Concomitant]
  5. NICARDIPINE HCL [Concomitant]
  6. RADICUT (EDARAVONE) [Concomitant]
  7. CATACLOT (OZAGREL SODIUM) [Concomitant]
  8. ERIL (ENALAPRIL MALEATE) [Concomitant]

REACTIONS (8)
  - ACTIVITIES OF DAILY LIVING IMPAIRED [None]
  - BLOOD ALKALINE PHOSPHATASE INCREASED [None]
  - HAEMORRHAGIC CEREBRAL INFARCTION [None]
  - HAEMORRHAGIC DIATHESIS [None]
  - INTERNATIONAL NORMALISED RATIO INCREASED [None]
  - PROTHROMBIN LEVEL INCREASED [None]
  - SPEECH DISORDER [None]
  - VITAMIN K DEFICIENCY [None]
